FAERS Safety Report 13799113 (Version 1)
Quarter: 2017Q3

REPORT INFORMATION
  Report Type: Spontaneous
  Country: US (occurrence: US)
  Receive Date: 20170727
  Receipt Date: 20170727
  Transmission Date: 20171127
  Serious: No
  Sender: FDA-Public Use
  Company Number: US-JNJFOC-20170616349

PATIENT
  Age: 70 Year
  Sex: Female
  Weight: 43.55 kg

DRUGS (3)
  1. AMLOPEN [Concomitant]
     Indication: BLOOD PRESSURE MEASUREMENT
     Route: 065
  2. PEPCID COMPLETE [Suspect]
     Active Substance: CALCIUM CARBONATE\FAMOTIDINE\MAGNESIUM HYDROXIDE
     Route: 048
  3. PEPCID COMPLETE [Suspect]
     Active Substance: CALCIUM CARBONATE\FAMOTIDINE\MAGNESIUM HYDROXIDE
     Indication: GASTROOESOPHAGEAL REFLUX DISEASE
     Dosage: 2 TABLETS (ONE IN MORNING AND ONE IN THE EVENING)
     Route: 048

REACTIONS (2)
  - Chest pain [Recovered/Resolved]
  - Feeling abnormal [Recovered/Resolved]
